FAERS Safety Report 6616195-5 (Version None)
Quarter: 2010Q1

REPORT INFORMATION
  Report Type: 
  Country: None (occurrence: None)
  Receive Date: 20100305
  Receipt Date: 20100225
  Transmission Date: 20100710
  Serious: Yes (Hospitalization)
  Sender: FDA-Public Use
  Company Number: PHHO2010FR02847

PATIENT
  Sex: Male
  Weight: 81 kg

DRUGS (6)
  1. NEORAL [Suspect]
     Indication: RENAL TRANSPLANT
     Dosage: 250MG/DAY
     Route: 048
     Dates: start: 20100126
  2. MYCOPHENOLIC ACID [Suspect]
     Indication: RENAL TRANSPLANT
     Dosage: 1560MG/DAY
     Route: 048
     Dates: start: 20100126
  3. CORTANCYL [Suspect]
     Indication: RENAL TRANSPLANT
     Dosage: UNK
  4. BACTRIM [Concomitant]
  5. SECTRAL [Concomitant]
  6. ELISOR [Concomitant]

REACTIONS (9)
  - ABDOMINAL DISTENSION [None]
  - ASCITES [None]
  - ASTHENIA [None]
  - CYTOLYTIC HEPATITIS [None]
  - DYSPNOEA [None]
  - HEPATIC PAIN [None]
  - OEDEMA PERIPHERAL [None]
  - PANCYTOPENIA [None]
  - PULMONARY OEDEMA [None]
